FAERS Safety Report 12459642 (Version 1)
Quarter: 2016Q2

REPORT INFORMATION
  Report Type: Spontaneous
  Country: US (occurrence: None)
  Receive Date: 20160610
  Receipt Date: 20160610
  Transmission Date: 20160815
  Serious: Yes (Hospitalization, Other)
  Sender: FDA-Public Use
  Company Number: None

PATIENT
  Age: 54 Year
  Sex: Female
  Weight: 53.07 kg

DRUGS (3)
  1. BUSPIRONE [Suspect]
     Active Substance: BUSPIRONE HYDROCHLORIDE
     Indication: ANXIETY
     Dates: start: 20160516, end: 20160604
  2. RIZATRIPTAN. [Concomitant]
     Active Substance: RIZATRIPTAN
  3. TOPIRAMATE. [Concomitant]
     Active Substance: TOPIRAMATE

REACTIONS (8)
  - Ataxia [None]
  - Refraction disorder [None]
  - IIIrd nerve paralysis [None]
  - Hemiparesis [None]
  - Haemorrhagic stroke [None]
  - Vasoconstriction [None]
  - Embolic cerebral infarction [None]
  - Thalamic infarction [None]

NARRATIVE: CASE EVENT DATE: 20160604
